FAERS Safety Report 16118316 (Version 39)
Quarter: 2023Q1

REPORT INFORMATION
  Report Type: Spontaneous
  Country: GB (occurrence: GB)
  Receive Date: 20190326
  Receipt Date: 20230130
  Transmission Date: 20230418
  Serious: Yes (Hospitalization, Other)
  Sender: FDA-Public Use
  Company Number: GB-MYLANLABS-2016M1049014

PATIENT
  Age: 26 Year
  Sex: Female

DRUGS (31)
  1. VENLAFAXINE [Suspect]
     Active Substance: VENLAFAXINE HYDROCHLORIDE
     Indication: Anxiolytic therapy
     Route: 048
     Dates: start: 201903
  2. CLOZARIL [Suspect]
     Active Substance: CLOZAPINE
     Indication: Schizophrenia
     Dosage: 100 MG AM (300 MG, QD) 100 MG AM AND 200 MG PM), 100 MG QD
     Route: 048
     Dates: start: 20160606
  3. CLOZARIL [Suspect]
     Active Substance: CLOZAPINE
     Indication: Depression
     Dosage: 100 MILLIGRAM, QD [100 MG AM (300 MG, QD) 100 MG AM AND 200 MG PM), 100 MG QD]
     Route: 048
     Dates: start: 20160606
  4. CLOZARIL [Suspect]
     Active Substance: CLOZAPINE
     Dosage: 550 MILLIGRAM, QD
     Route: 048
     Dates: start: 201903
  5. CLOZARIL [Suspect]
     Active Substance: CLOZAPINE
     Route: 048
     Dates: start: 20181128
  6. CLOZARIL [Suspect]
     Active Substance: CLOZAPINE
     Route: 048
     Dates: start: 201903
  7. CLOZARIL [Suspect]
     Active Substance: CLOZAPINE
     Dosage: 500 MILLIGRAM
     Route: 048
     Dates: start: 201903
  8. CLOZARIL [Suspect]
     Active Substance: CLOZAPINE
     Dosage: 300 MILLIGRAM, QD, (300 MG, QD (100 MG AM AND 200 MG PM))
     Route: 048
     Dates: start: 20160606
  9. CLOZARIL [Suspect]
     Active Substance: CLOZAPINE
     Route: 048
     Dates: start: 201901
  10. TOPIRAMATE [Suspect]
     Active Substance: TOPIRAMATE
     Indication: Affective disorder
     Dosage: 50 MG, QD, (25 MG, BID)
     Route: 048
     Dates: start: 201903
  11. TOPIRAMATE [Suspect]
     Active Substance: TOPIRAMATE
     Indication: Affective disorder
     Dosage: 50 MILLIGRAM, QD, (50 MG, QD) / 25 MG, BID
     Route: 048
     Dates: start: 201603
  12. TOPIRAMATE [Suspect]
     Active Substance: TOPIRAMATE
     Dosage: 100 MG, QD (50 MG QD, 50 MG QD)
     Route: 048
     Dates: start: 201603
  13. TOPIRAMATE [Suspect]
     Active Substance: TOPIRAMATE
     Dosage: (25 MG, BID) / 25 MILLIGRAM, BID (25 MG, BID)
     Route: 048
     Dates: start: 201603
  14. TOPIRAMATE [Suspect]
     Active Substance: TOPIRAMATE
     Dosage: UNK, OVERDOSED
     Route: 048
     Dates: start: 201903
  15. TOPIRAMATE [Suspect]
     Active Substance: TOPIRAMATE
     Route: 048
  16. TOPIRAMATE [Suspect]
     Active Substance: TOPIRAMATE
     Dosage: 100 MG, QD, (50 MG QD, 50 MG QD)
     Route: 048
     Dates: start: 201903
  17. TOPIRAMATE [Suspect]
     Active Substance: TOPIRAMATE
     Dosage: 50 MILLIGRAM, QD, (50 MG, QD)
     Route: 048
  18. TOPIRAMATE [Suspect]
     Active Substance: TOPIRAMATE
     Dosage: 50 MG, QD, (50 MG, QD)
     Route: 065
     Dates: start: 201903
  19. TOPIRAMATE [Suspect]
     Active Substance: TOPIRAMATE
     Dosage: 100 MG, QD (50 MG QD, 50 MG QD)
     Route: 048
     Dates: start: 201903
  20. TOPIRAMATE [Suspect]
     Active Substance: TOPIRAMATE
     Dosage: 50 MILLIGRAM, QD, (50 MG, QD)
     Route: 065
  21. TOPIRAMATE [Suspect]
     Active Substance: TOPIRAMATE
     Dosage: 100 MG, QD (50 MG QD, 50 MG QD)
     Route: 065
     Dates: start: 201903
  22. TOPIRAMATE [Suspect]
     Active Substance: TOPIRAMATE
     Dosage: 100 MG, QD (50 MG QD, 50 MG QD)
     Route: 065
  23. TOPIRAMATE [Suspect]
     Active Substance: TOPIRAMATE
     Dosage: 50 MG, BID
     Route: 065
     Dates: start: 201903
  24. TOPIRAMATE [Suspect]
     Active Substance: TOPIRAMATE
     Dosage: 25 MG, BID
     Route: 065
     Dates: start: 201903
  25. TOPIRAMATE [Suspect]
     Active Substance: TOPIRAMATE
     Dosage: 50 MILLIGRAM, QD [50 MG, QD, (25 MG, BID)/ MAR-2019]
     Route: 065
     Dates: start: 201603
  26. TOPIRAMATE [Suspect]
     Active Substance: TOPIRAMATE
     Dosage: 25 MG, BID
     Route: 065
     Dates: start: 201603
  27. ARIPIPRAZOLE [Suspect]
     Active Substance: ARIPIPRAZOLE
     Indication: Affective disorder
     Dosage: ARIPIPRAZOLE SANDOZ
     Route: 048
     Dates: start: 201903
  28. ARIPIPRAZOLE [Suspect]
     Active Substance: ARIPIPRAZOLE
     Indication: Schizophrenia
     Route: 065
     Dates: start: 201603
  29. ARIPIPRAZOLE [Suspect]
     Active Substance: ARIPIPRAZOLE
     Indication: Affective disorder
  30. MIRTAZAPINE [Suspect]
     Active Substance: MIRTAZAPINE
     Indication: Depression
     Route: 048
     Dates: start: 201903, end: 20220208
  31. PREGABALIN [Concomitant]
     Active Substance: PREGABALIN
     Indication: Anxiolytic therapy
     Dosage: 75 MILLIGRAM, (75 MG, UNK)
     Route: 048

REACTIONS (6)
  - Infection [Unknown]
  - Hospitalisation [Unknown]
  - Product use in unapproved indication [Unknown]
  - Off label use [Unknown]
  - Pyrexia [Recovered/Resolved]
  - Overdose [Unknown]

NARRATIVE: CASE EVENT DATE: 20161010
